FAERS Safety Report 4844981-0 (Version None)
Quarter: 2005Q4

REPORT INFORMATION
  Report Type: 
  Country: None (occurrence: None)
  Receive Date: 20051129
  Receipt Date: 20051104
  Transmission Date: 20060501
  Serious: Yes (Other)
  Sender: FDA-Public Use
  Company Number: S05-ITA-04162-01

PATIENT
  Age: 73 Year
  Sex: Female

DRUGS (2)
  1. MEMANTINE HCL [Suspect]
     Indication: DEMENTIA ALZHEIMER'S TYPE
     Dosage: 10 MG BID PO
     Route: 048
     Dates: start: 20040201, end: 20040826
  2. EXELON [Suspect]
     Indication: DEMENTIA ALZHEIMER'S TYPE
     Dosage: 3 MG BID PO
     Route: 048
     Dates: start: 20030827, end: 20040826

REACTIONS (1)
  - PETIT MAL EPILEPSY [None]
